FAERS Safety Report 16912996 (Version 2)
Quarter: 2024Q2

REPORT INFORMATION
  Report Type: Report from Study
  Country: GB (occurrence: GB)
  Receive Date: 20191014
  Receipt Date: 20240425
  Transmission Date: 20240716
  Serious: Yes (Death, Other)
  Sender: FDA-Public Use
  Company Number: GB-AUROBINDO-AUR-APL-2019-061385

PATIENT
  Age: 77 Year
  Sex: Male

DRUGS (8)
  1. CINACALCET [Suspect]
     Active Substance: CINACALCET
     Indication: Osteoporosis
     Dosage: 60 MILLIGRAM, ONCE A DAY
     Route: 065
  2. CINACALCET [Suspect]
     Active Substance: CINACALCET
     Indication: Supplementation therapy
     Dosage: 30 MILLIGRAM, ONCE A DAY
     Route: 065
  3. DENOSUMAB [Suspect]
     Active Substance: DENOSUMAB
     Indication: Osteoporosis
     Dosage: 60 MILLIGRAM, DAILY
     Route: 058
  4. ALFACALCIDOL [Concomitant]
     Active Substance: ALFACALCIDOL
     Indication: Supplementation therapy
     Dosage: 1 MICROGRAM, ALTERNATE DAYS
     Route: 065
  5. ALFACALCIDOL [Concomitant]
     Active Substance: ALFACALCIDOL
     Dosage: 1 MICROGRAM, DAILY, INCREASED DOSE
     Route: 065
  6. CALCIUM [Concomitant]
     Active Substance: CALCIUM
     Indication: Supplementation therapy
     Dosage: 1 GRAM, ONCE A DAY
     Route: 065
  7. CALCIUM [Concomitant]
     Active Substance: CALCIUM
     Dosage: 3 GRAM, ONCE A DAY, INCREASED DOSE
     Route: 065
  8. ALUMINUM HYDROXIDE [Concomitant]
     Active Substance: ALUMINUM HYDROXIDE
     Indication: Product used for unknown indication
     Dosage: 475 MILLIGRAM, UNK
     Route: 065

REACTIONS (5)
  - Hypocalcaemia [Fatal]
  - Death [Fatal]
  - Hypoaesthesia [Unknown]
  - Paraesthesia [Unknown]
  - Muscle spasms [Unknown]
